FAERS Safety Report 4979303-8 (Version None)
Quarter: 2006Q2

REPORT INFORMATION
  Report Type: 
  Country: None (occurrence: None)
  Receive Date: 20060421
  Receipt Date: 20050927
  Transmission Date: 20061013
  Serious: Yes (Hospitalization, Other)
  Sender: FDA-Public Use
  Company Number: US-MERCK-0509USA04024

PATIENT
  Age: 57 Year
  Sex: Male

DRUGS (13)
  1. VIOXX [Suspect]
     Indication: OSTEOARTHRITIS
     Route: 048
     Dates: start: 19991020, end: 20000606
  2. VIOXX [Suspect]
     Indication: CHONDROCALCINOSIS PYROPHOSPHATE
     Route: 048
     Dates: start: 19991020, end: 20000606
  3. ARTHROTEC [Concomitant]
     Route: 065
  4. COZAAR [Concomitant]
     Route: 065
  5. NORVASC [Concomitant]
     Route: 065
  6. GLUCOSAMINE [Concomitant]
     Route: 065
  7. VITAMIN E [Concomitant]
     Route: 065
  8. CALCIUM (UNSPECIFIED) [Concomitant]
     Route: 065
  9. ECHINACEA (UNSPECIFIED) [Concomitant]
     Route: 065
  10. LIPITOR [Concomitant]
     Route: 065
  11. LESCOL [Concomitant]
     Route: 065
  12. NIACIN [Concomitant]
     Route: 065
  13. BAYCOL [Concomitant]
     Route: 065

REACTIONS (29)
  - ABDOMINAL DISTENSION [None]
  - ABDOMINAL PAIN UPPER [None]
  - AORTIC VALVE INCOMPETENCE [None]
  - ASTHENIA [None]
  - BLOOD CREATINE PHOSPHOKINASE MB INCREASED [None]
  - BUNDLE BRANCH BLOCK [None]
  - COLD SWEAT [None]
  - COUGH [None]
  - DILATATION ATRIAL [None]
  - DIZZINESS [None]
  - DRUG INEFFECTIVE [None]
  - DRY EYE [None]
  - DRY MOUTH [None]
  - HYPERHIDROSIS [None]
  - HYPERSENSITIVITY [None]
  - LEFT VENTRICULAR FAILURE [None]
  - LOSS OF CONSCIOUSNESS [None]
  - MITRAL VALVE INCOMPETENCE [None]
  - MOOD ALTERED [None]
  - MUSCULOSKELETAL STIFFNESS [None]
  - MYOCARDIAL INFARCTION [None]
  - NASAL CONGESTION [None]
  - NIGHT SWEATS [None]
  - ROTATOR CUFF SYNDROME [None]
  - SILENT MYOCARDIAL INFARCTION [None]
  - SINUSITIS [None]
  - STOMACH DISCOMFORT [None]
  - VENTRICULAR EXTRASYSTOLES [None]
  - VOMITING [None]
